FAERS Safety Report 14281185 (Version 1)
Quarter: 2017Q4

REPORT INFORMATION
  Report Type: Report from Study
  Country: CA (occurrence: CA)
  Receive Date: 20171213
  Receipt Date: 20171213
  Transmission Date: 20180321
  Serious: Yes (Death, Other)
  Sender: FDA-Public Use
  Company Number: CA-JAZZ-2017-CA-016373

PATIENT
  Age: 19 Year
  Sex: Female

DRUGS (2)
  1. DEFITELIO [Suspect]
     Active Substance: DEFIBROTIDE SODIUM
     Indication: VENOOCCLUSIVE DISEASE
  2. URSODIOL. [Concomitant]
     Active Substance: URSODIOL

REACTIONS (2)
  - Fluid overload [Unknown]
  - Death [Fatal]
